FAERS Safety Report 6317446-7 (Version None)
Quarter: 2009Q3

REPORT INFORMATION
  Report Type: 
  Country: None (occurrence: None)
  Receive Date: 20090821
  Receipt Date: 20090811
  Transmission Date: 20100115
  Serious: Yes (Other)
  Sender: FDA-Public Use
  Company Number: CA-JNJFOC-20090803708

PATIENT
  Sex: Female
  Weight: 114 kg

DRUGS (18)
  1. REMICADE [Suspect]
     Route: 042
  2. REMICADE [Suspect]
     Route: 042
  3. REMICADE [Suspect]
     Indication: DRUG USE FOR UNKNOWN INDICATION
     Route: 042
  4. METHOTREXATE [Concomitant]
  5. FOSAMAX [Concomitant]
  6. PREDNISONE [Concomitant]
  7. PANTOPRAZOLE SODIUM [Concomitant]
  8. ELAVIL [Concomitant]
  9. EFFEXOR [Concomitant]
  10. CELEBREX [Concomitant]
  11. FLEXERIL [Concomitant]
  12. LIPITOR [Concomitant]
  13. XANAX [Concomitant]
  14. IMOVANE [Concomitant]
  15. FOLIC ACID [Concomitant]
  16. MS CONTIN [Concomitant]
  17. GRAVOL TAB [Concomitant]
  18. HYDROCHLOROTHIAZIDE [Concomitant]

REACTIONS (4)
  - CONTUSION [None]
  - FOOT FRACTURE [None]
  - SCRATCH [None]
  - SKIN DISCOLOURATION [None]
